FAERS Safety Report 7728113-7 (Version None)
Quarter: 2011Q3

REPORT INFORMATION
  Report Type: 
  Country: None (occurrence: None)
  Receive Date: 20110905
  Receipt Date: 20110825
  Transmission Date: 20111222
  Serious: Yes (Other)
  Sender: FDA-Public Use
  Company Number: US-SHIRE-ALL1-2011-02978

PATIENT
  Sex: Male

DRUGS (2)
  1. FOSRENOL [Suspect]
     Dosage: 750 MG, (3) UNKNOWN
     Route: 065
  2. FOSRENOL [Suspect]
     Indication: HYPERPHOSPHATAEMIA
     Dosage: 1500 MG, UNKNOWN
     Route: 048

REACTIONS (2)
  - LUNG NEOPLASM MALIGNANT [None]
  - BLOOD PHOSPHORUS INCREASED [None]
